FAERS Safety Report 19161885 (Version 2)
Quarter: 2021Q3

REPORT INFORMATION
  Report Type: Report from Study
  Country: CA (occurrence: CA)
  Receive Date: 20210421
  Receipt Date: 20210818
  Transmission Date: 20211014
  Serious: Yes (Hospitalization)
  Sender: FDA-Public Use
  Company Number: CA-ROCHE-2809617

PATIENT
  Age: 61 Year
  Sex: Male

DRUGS (18)
  1. FLUZONE [Concomitant]
     Active Substance: INFLUENZA A VIRUS A/CALIFORNIA/7/2009 X-179A (H1N1) ANTIGEN (FORMALDEHYDE INACTIVATED)\INFLUENZA A VIRUS A/VICTORIA/210/2009 X-187 (H3N2) ANTIGEN (FORMALDEHYDE INACTIVATED)\INFLUENZA B VIRUS B/BRISBANE/60/2008 ANTIGEN (FORMALDEHYDE INACTIVATED)
     Dates: start: 20111019
  2. TICAGRELOR. [Concomitant]
     Active Substance: TICAGRELOR
     Dates: start: 20200215
  3. CISPLATIN. [Suspect]
     Active Substance: CISPLATIN
     Indication: HAEMATOLOGICAL MALIGNANCY
     Dosage: LAST DOSE ADMINISTERED ON 26/MAR/2020 (DAY 1)
     Route: 042
     Dates: start: 20210305
  4. SULFAMETHOXAZOLE [Concomitant]
     Active Substance: SULFAMETHOXAZOLE
     Dates: start: 202006
  5. METOPROLOL. [Concomitant]
     Active Substance: METOPROLOL
     Dates: start: 20200215
  6. ROSUVASTATIN. [Concomitant]
     Active Substance: ROSUVASTATIN
     Dates: start: 20180623
  7. CODEINE [Concomitant]
     Active Substance: CODEINE
     Dates: start: 20210312
  8. METFORMIN [Concomitant]
     Active Substance: METFORMIN HYDROCHLORIDE
     Dates: start: 2016
  9. LANTUS [Concomitant]
     Active Substance: INSULIN GLARGINE
     Dates: start: 202010
  10. NITROGLYCERIN. [Concomitant]
     Active Substance: NITROGLYCERIN
     Dates: start: 20200715
  11. ONDANSETRON [Concomitant]
     Active Substance: ONDANSETRON
     Dates: start: 20200715
  12. DEXAMETHASONE. [Suspect]
     Active Substance: DEXAMETHASONE
     Indication: HAEMATOLOGICAL MALIGNANCY
     Dosage: LAST DOSE ADMINISTERED 29/MAR/2021,  D1 ? D4
     Route: 048
     Dates: start: 20210326
  13. DAPAGLIFLOZIN PROPANEDIOL. [Concomitant]
     Active Substance: DAPAGLIFLOZIN PROPANEDIOL
     Dates: start: 20200215
  14. GEMCITABINE. [Suspect]
     Active Substance: GEMCITABINE
     Indication: HAEMATOLOGICAL MALIGNANCY
     Dosage: LAST DOSE ADMINISTERED ON 01/APR/2021 (DAY 1,8)
     Route: 042
     Dates: start: 20210305
  15. VALTREX [Concomitant]
     Active Substance: VALACYCLOVIR HYDROCHLORIDE
     Dates: start: 202006
  16. RITUXIMAB. [Suspect]
     Active Substance: RITUXIMAB
     Indication: HAEMATOLOGICAL MALIGNANCY
     Dosage: LAST DOSE ADMINISTERED ON 01/APR/2021?26/MAR/2021 (2ND CYCLE)
     Route: 058
     Dates: start: 20210305
  17. METOCLOPRAMIDE. [Concomitant]
     Active Substance: METOCLOPRAMIDE
     Dates: start: 202006
  18. MORPHINE SULFATE. [Concomitant]
     Active Substance: MORPHINE SULFATE
     Dates: start: 20200715

REACTIONS (1)
  - Atrial fibrillation [Recovered/Resolved]

NARRATIVE: CASE EVENT DATE: 20210403
